FAERS Safety Report 5043348-2 (Version None)
Quarter: 2006Q2

REPORT INFORMATION
  Report Type: 
  Country: None (occurrence: None)
  Receive Date: 20060629
  Receipt Date: 20060619
  Transmission Date: 20061013
  Serious: Yes (Hospitalization)
  Sender: FDA-Public Use
  Company Number: USA-2006-0024240

PATIENT
  Age: 1 Year
  Sex: Male

DRUGS (11)
  1. CEFDITOREN PIVOXIL [Suspect]
     Indication: OTITIS MEDIA
     Dosage: SEE IMAGE
     Dates: start: 20051210, end: 20051213
  2. CEFDITOREN PIVOXIL [Suspect]
     Indication: OTITIS MEDIA
     Dosage: SEE IMAGE
     Dates: start: 20051216, end: 20051220
  3. CEFDITOREN PIVOXIL [Suspect]
     Indication: OTITIS MEDIA
     Dosage: SEE IMAGE
     Dates: start: 20051227, end: 20060103
  4. CEFDITOREN PIVOXIL [Suspect]
     Indication: OTITIS MEDIA
     Dosage: SEE IMAGE
     Dates: start: 20050126, end: 20060207
  5. CEFDITOREN PIVOXIL [Suspect]
     Indication: OTITIS MEDIA
     Dosage: SEE IMAGE
     Dates: start: 20060214, end: 20060221
  6. CEFDITOREN PIVOXIL [Suspect]
     Indication: OTITIS MEDIA
     Dosage: SEE IMAGE
     Dates: start: 20060311, end: 20060318
  7. CEFDITOREN PIVOXIL [Suspect]
     Indication: OTITIS MEDIA
     Dosage: SEE IMAGE
     Dates: start: 20060401, end: 20060405
  8. FLOMOX (CEFCAPENE PIVOXIL HYDROCHLORIDE) [Concomitant]
     Indication: OTITIS MEDIA
     Dosage: SEE IMAGE
     Dates: start: 20051221, end: 20051227
  9. FLOMOX (CEFCAPENE PIVOXIL HYDROCHLORIDE) [Concomitant]
     Indication: OTITIS MEDIA
     Dosage: SEE IMAGE
     Dates: start: 20060114, end: 20060119
  10. FLOMOX (CEFCAPENE PIVOXIL HYDROCHLORIDE) [Concomitant]
     Indication: OTITIS MEDIA
     Dosage: SEE IMAGE
     Dates: start: 20060221, end: 20060311
  11. CEFMETAZON (CEFMETAZOLE SODIUM) [Concomitant]

REACTIONS (5)
  - AMMONIA INCREASED [None]
  - BLOOD GLUCOSE DECREASED [None]
  - CARNITINE DECREASED [None]
  - CONVULSION [None]
  - DEPRESSED LEVEL OF CONSCIOUSNESS [None]
